FAERS Safety Report 21341580 (Version 7)
Quarter: 2022Q4

REPORT INFORMATION
  Report Type: Report from Study
  Country: US (occurrence: US)
  Receive Date: 20220916
  Receipt Date: 20221230
  Transmission Date: 20230113
  Serious: No
  Sender: FDA-Public Use
  Company Number: US-NOVARTISTESTPH-NVSC2022US208754

PATIENT
  Sex: Female
  Weight: 153.3 kg

DRUGS (1)
  1. COSENTYX [Suspect]
     Active Substance: SECUKINUMAB
     Indication: Psoriasis
     Dosage: 300 MG, QW
     Route: 058
     Dates: start: 20220822

REACTIONS (7)
  - Injection site pain [Recovered/Resolved]
  - Oropharyngeal pain [Unknown]
  - Headache [Unknown]
  - Frequent bowel movements [Unknown]
  - Rhinorrhoea [Unknown]
  - Product preparation error [Unknown]
  - Drug ineffective [Unknown]
